FAERS Safety Report 16388923 (Version 1)
Quarter: 2019Q2

REPORT INFORMATION
  Report Type: Spontaneous
  Country: JP (occurrence: JP)
  Receive Date: 20190604
  Receipt Date: 20190604
  Transmission Date: 20190711
  Serious: Yes (Other)
  Sender: FDA-Public Use
  Company Number: PHHY2019JP126944

PATIENT
  Sex: Female

DRUGS (3)
  1. RIVASTACH [Suspect]
     Active Substance: RIVASTIGMINE
     Indication: DEMENTIA WITH LEWY BODIES
     Dosage: 6.9 MG, QD, PATCH 7.5 (CM2)
     Route: 062
  2. THIOPENTAL SODIUM. [Concomitant]
     Active Substance: THIOPENTAL SODIUM
     Indication: ANAESTHESIA PROCEDURE
     Dosage: 75 MG
     Route: 065
  3. SUXAMETHONIUM [Concomitant]
     Active Substance: SUCCINYLCHOLINE
     Indication: ANAESTHESIA PROCEDURE
     Dosage: 40 MG, UNK
     Route: 065

REACTIONS (2)
  - Off label use [Unknown]
  - Apnoea [Unknown]
